FAERS Safety Report 7467551-7 (Version None)
Quarter: 2011Q2

REPORT INFORMATION
  Report Type: 
  Country: None (occurrence: None)
  Receive Date: 20110509
  Receipt Date: 20110403
  Transmission Date: 20111010
  Serious: Yes (Hospitalization, Other)
  Sender: FDA-Public Use
  Company Number: US-BAYER-201027315NA

PATIENT
  Age: 45 Year
  Sex: Female
  Weight: 72.562 kg

DRUGS (2)
  1. YAZ [Suspect]
     Indication: PRODUCT USED FOR UNKNOWN INDICATION
     Dosage: MANY YEARS PRIOR TO 10-DEC-2008
     Route: 048
     Dates: end: 20081210
  2. YASMIN [Suspect]
     Indication: PRODUCT USED FOR UNKNOWN INDICATION
     Dosage: MANY YEARS PRIOR TO 10-DEC-2008
     Route: 048
     Dates: end: 20081210

REACTIONS (14)
  - SYNCOPE [None]
  - DEEP VEIN THROMBOSIS [None]
  - HEADACHE [None]
  - GAIT DISTURBANCE [None]
  - PAIN [None]
  - ARTHRALGIA [None]
  - STRESS [None]
  - ANXIETY [None]
  - CONVULSION [None]
  - FALL [None]
  - PAIN IN EXTREMITY [None]
  - FEAR [None]
  - PULMONARY EMBOLISM [None]
  - HEAD INJURY [None]
